FAERS Safety Report 25887308 (Version 1)
Quarter: 2025Q4

REPORT INFORMATION
  Report Type: Spontaneous
  Country: US (occurrence: US)
  Receive Date: 20251006
  Receipt Date: 20251006
  Transmission Date: 20260118
  Serious: No
  Sender: ABBVIE
  Company Number: US-ABBVIE-6244808

PATIENT

DRUGS (2)
  1. REFRESH RELIEVA PF XTRA [Suspect]
     Active Substance: CARBOXYMETHYLCELLULOSE SODIUM\GLYCERIN
     Indication: Product used for unknown indication
     Dosage: PRESERVATIVE FREE
     Route: 047
     Dates: start: 20250921
  2. REFRESH RELIEVA [Suspect]
     Active Substance: CARBOXYMETHYLCELLULOSE SODIUM\GLYCERIN
     Indication: Product used for unknown indication
     Route: 047
     Dates: start: 20250421

REACTIONS (6)
  - Eyelid irritation [Unknown]
  - Eye irritation [Unknown]
  - Vision blurred [Unknown]
  - Rash papular [Unknown]
  - Swelling of eyelid [Unknown]
  - Erythema of eyelid [Unknown]

NARRATIVE: CASE EVENT DATE: 20250421
